FAERS Safety Report 7821275-2 (Version None)
Quarter: 2011Q4

REPORT INFORMATION
  Report Type: 
  Country: None (occurrence: None)
  Receive Date: 20111018
  Receipt Date: 20101105
  Transmission Date: 20120403
  Serious: No
  Sender: FDA-Public Use
  Company Number: US-ASTRAZENECA-2010SE52953

PATIENT
  Age: 887 Month
  Sex: Male
  Weight: 90.7 kg

DRUGS (6)
  1. SPIRIVA [Suspect]
     Indication: DYSPNOEA
     Route: 055
  2. FLOVENT [Concomitant]
     Indication: DYSPNOEA
     Route: 055
  3. AMLODIPINE [Concomitant]
     Indication: HYPERTENSION
     Route: 048
  4. CARBEDILOL [Concomitant]
     Indication: OLIGURIA
     Route: 048
  5. SYMBICORT [Suspect]
     Indication: DYSPNOEA
     Dosage: 80/4.5 MCG BID
     Route: 055
     Dates: start: 20101001, end: 20101102
  6. QVAR 40 [Concomitant]
     Indication: DYSPNOEA
     Route: 055

REACTIONS (7)
  - DIARRHOEA [None]
  - DRUG INEFFECTIVE [None]
  - DYSPNOEA [None]
  - DYSURIA [None]
  - DIZZINESS [None]
  - ABDOMINAL DISCOMFORT [None]
  - CONSTIPATION [None]
